FAERS Safety Report 18507076 (Version 1)
Quarter: 2020Q4

REPORT INFORMATION
  Report Type: Spontaneous
  Country: US (occurrence: US)
  Receive Date: 20201116
  Receipt Date: 20201116
  Transmission Date: 20210114
  Serious: Yes (Hospitalization, Other)
  Sender: FDA-Public Use
  Company Number: US-ASTELLAS-2020US039866

PATIENT
  Age: 79 Year
  Sex: Male

DRUGS (2)
  1. XTANDI [Suspect]
     Active Substance: ENZALUTAMIDE
     Indication: PRODUCT USED FOR UNKNOWN INDICATION
     Route: 065
     Dates: start: 20201001, end: 20201105
  2. XTANDI [Suspect]
     Active Substance: ENZALUTAMIDE
     Route: 065
     Dates: start: 20201106, end: 20201108

REACTIONS (4)
  - Pulmonary embolism [Unknown]
  - Inappropriate schedule of product administration [Unknown]
  - Ileus [Unknown]
  - Overdose [Unknown]

NARRATIVE: CASE EVENT DATE: 20201104
